FAERS Safety Report 18639610 (Version 1)
Quarter: 2020Q4

REPORT INFORMATION
  Report Type: Spontaneous
  Country: IT (occurrence: IT)
  Receive Date: 20201220
  Receipt Date: 20201220
  Transmission Date: 20210114
  Serious: Yes (Other)
  Sender: FDA-Public Use
  Company Number: IT-LUPIN PHARMACEUTICALS INC.-2020-10458

PATIENT
  Age: 5 Decade
  Sex: Female

DRUGS (5)
  1. MONTELUKAST [Concomitant]
     Active Substance: MONTELUKAST SODIUM
     Indication: ASTHMA
     Dosage: 10 MILLIGRAM
     Route: 065
  2. SALMETEROL [Concomitant]
     Active Substance: SALMETEROL
     Indication: ASTHMA
     Dosage: UNK
     Route: 065
  3. METHYLPREDNISOLONE. [Suspect]
     Active Substance: METHYLPREDNISOLONE
     Indication: EOSINOPHILIC PNEUMONIA CHRONIC
     Dosage: 32 MILLIGRAM
     Route: 048
  4. METHYLPREDNISOLONE. [Suspect]
     Active Substance: METHYLPREDNISOLONE
     Dosage: 16 MILLIGRAM
     Route: 048
     Dates: end: 201903
  5. FLUTICASONE PROPIONATE. [Suspect]
     Active Substance: FLUTICASONE PROPIONATE
     Indication: EOSINOPHILIC PNEUMONIA CHRONIC
     Dosage: 1000 MICROGRAM
     Route: 065
     Dates: end: 201903

REACTIONS (4)
  - Hypertension [Unknown]
  - Hyperglycaemia [Unknown]
  - Osteoporosis [Unknown]
  - Cushingoid [Unknown]
